FAERS Safety Report 8883809 (Version 1)
Quarter: 2012Q4

REPORT INFORMATION
  Report Type: 
  Country: US (occurrence: US)
  Receive Date: 20121102
  Receipt Date: 20121102
  Transmission Date: 20130627
  Serious: No
  Sender: FDA-Public Use
  Company Number: US-ASTRAZENECA-2012SE07703

PATIENT
  Age: 86 Year
  Sex: Female

DRUGS (3)
  1. CRESTOR [Suspect]
     Route: 048
  2. UNSPECIFIED DRUG [Suspect]
     Route: 065
  3. ROSUVASTATIN CALCIUM [Concomitant]

REACTIONS (10)
  - Blood pressure decreased [Unknown]
  - Blood glucose decreased [Unknown]
  - Pain [Unknown]
  - Feeling cold [Unknown]
  - Carotid artery occlusion [Unknown]
  - Rash macular [Unknown]
  - Muscle spasms [Unknown]
  - Pain in extremity [Unknown]
  - Pain in extremity [Unknown]
  - Intentional drug misuse [Unknown]
